FAERS Safety Report 6794111-3 (Version None)
Quarter: 2010Q2

REPORT INFORMATION
  Report Type: 
  Country: None (occurrence: None)
  Receive Date: 20100624
  Receipt Date: 20090811
  Transmission Date: 20101027
  Serious: No
  Sender: FDA-Public Use
  Company Number: US-PFIZER INC-2009241558

PATIENT
  Sex: Female
  Weight: 79.38 kg

DRUGS (9)
  1. RELPAX [Suspect]
     Indication: MIGRAINE
     Dosage: 40 MG, UNK
     Route: 048
     Dates: start: 20090714
  2. LEXAPRO [Concomitant]
     Dosage: UNK
  3. CLONAZEPAM [Concomitant]
     Dosage: UNK
  4. VALTREX [Concomitant]
     Dosage: UNK
  5. AMPICILLIN [Concomitant]
     Dosage: UNK
  6. FEVERFEW [Concomitant]
     Dosage: UNK
  7. FISH OIL [Concomitant]
     Dosage: UNK
  8. OXITRIPTAN [Concomitant]
     Dosage: UNK
  9. CALCIUM [Concomitant]
     Dosage: UNK

REACTIONS (1)
  - FATIGUE [None]
